FAERS Safety Report 7793512-4 (Version None)
Quarter: 2011Q4

REPORT INFORMATION
  Report Type: 
  Country: None (occurrence: None)
  Receive Date: 20111003
  Receipt Date: 20110422
  Transmission Date: 20120403
  Serious: Yes (Life-Threatening, Hospitalization, Other)
  Sender: FDA-Public Use
  Company Number: US-ELI_LILLY_AND_COMPANY-US201102005773

PATIENT
  Age: 42 Year
  Sex: Female
  Weight: 102.4 kg

DRUGS (15)
  1. LASIX [Concomitant]
     Indication: PRODUCT USED FOR UNKNOWN INDICATION
     Dosage: 40 MG, UNK
  2. PRAVACHOL [Concomitant]
     Indication: DYSLIPIDAEMIA
     Dosage: 40 MG, UNK
  3. PRILOSEC [Concomitant]
     Indication: GASTROOESOPHAGEAL REFLUX DISEASE
     Dosage: 40 MG, UNK
  4. BENADRYL [Concomitant]
     Indication: INSOMNIA
  5. FENTANYL [Concomitant]
     Indication: BACK PAIN
  6. PERCOCET [Concomitant]
     Indication: PRODUCT USED FOR UNKNOWN INDICATION
     Dosage: UNK, AS NEEDED
  7. NEURONTIN [Concomitant]
     Indication: PAIN
  8. CYMBALTA [Suspect]
     Dosage: 60 MG, BID
     Dates: start: 20080901, end: 20100901
  9. KLONOPIN [Concomitant]
     Indication: ANXIETY
  10. ATENOLOL [Concomitant]
     Indication: HYPERTENSION
  11. VESICARE [Concomitant]
     Indication: PRODUCT USED FOR UNKNOWN INDICATION
  12. ESTROGENIC SUBSTANCE [Concomitant]
     Indication: HORMONE REPLACEMENT THERAPY
  13. CYMBALTA [Suspect]
     Indication: DEPRESSION
     Dosage: 60 MG, UNK
     Dates: start: 20080201
  14. CLARITIN [Concomitant]
     Indication: PRODUCT USED FOR UNKNOWN INDICATION
  15. TRAZODONE HYDROCHLORIDE [Concomitant]
     Indication: INSOMNIA

REACTIONS (3)
  - ENDOTRACHEAL INTUBATION [None]
  - HEPATORENAL FAILURE [None]
  - HYPOTENSION [None]
